FAERS Safety Report 21967036 (Version 1)
Quarter: 2023Q1

REPORT INFORMATION
  Report Type: Spontaneous
  Country: US (occurrence: US)
  Receive Date: 20230208
  Receipt Date: 20230208
  Transmission Date: 20230417
  Serious: No
  Sender: FDA-Public Use
  Company Number: US-PERRIGO-22US013779

PATIENT
  Age: 11 Year
  Sex: Male
  Weight: 36.281 kg

DRUGS (1)
  1. IBUPROFEN [Suspect]
     Active Substance: IBUPROFEN
     Indication: Pain
     Dosage: 100 MG, SINGLE
     Route: 048
     Dates: start: 20221005, end: 20221005

REACTIONS (3)
  - Oral discomfort [Recovered/Resolved]
  - Hypoaesthesia oral [Recovered/Resolved]
  - Expired product administered [Unknown]

NARRATIVE: CASE EVENT DATE: 20221005
